FAERS Safety Report 5967967-1 (Version None)
Quarter: 2008Q4

REPORT INFORMATION
  Report Type: 
  Country: None (occurrence: None)
  Receive Date: 20081121
  Receipt Date: 20081121
  Transmission Date: 20090506
  Serious: Yes (Other)
  Sender: FDA-Public Use
  Company Number: None

PATIENT
  Sex: Male
  Weight: 46.6 kg

DRUGS (1)
  1. ONCASPAR [Suspect]
     Indication: ACUTE LYMPHOCYTIC LEUKAEMIA
     Dosage: 3400 UNITS ONCE IM
     Route: 030
     Dates: start: 20081111

REACTIONS (3)
  - CATHETER RELATED COMPLICATION [None]
  - ERYTHEMA [None]
  - PRURITUS [None]
